FAERS Safety Report 5682319-X (Version None)
Quarter: 2008Q1

REPORT INFORMATION
  Report Type: 
  Country: None (occurrence: None)
  Receive Date: 20080327
  Receipt Date: 20070402
  Transmission Date: 20080703
  Serious: No
  Sender: FDA-Public Use
  Company Number: US-BAUSCH-2007BL001164

PATIENT
  Age: 21 Year
  Sex: Female

DRUGS (3)
  1. ALREX [Suspect]
     Indication: GIANT PAPILLARY CONJUNCTIVITIS
     Route: 047
     Dates: start: 20060401
  2. ALREX [Suspect]
     Route: 047
     Dates: end: 20061104
  3. ORAL CONTRACEPTIVE NOS [Concomitant]
     Indication: CONTRACEPTION

REACTIONS (1)
  - CORNEAL OPACITY [None]
